FAERS Safety Report 8050486-9 (Version None)
Quarter: 2011Q4

REPORT INFORMATION
  Report Type: 
  Country: None (occurrence: None)
  Receive Date: 20111212
  Receipt Date: 20111031
  Transmission Date: 20120403
  Serious: Yes (Hospitalization)
  Sender: FDA-Public Use
  Company Number: PHEH2011US08198

PATIENT
  Age: 29 Year
  Sex: Female
  Weight: 52.0276 kg

DRUGS (6)
  1. GLATIRAMER ACETATE (GLATIRAMER ACETATE) [Concomitant]
  2. INTERFERON BETA-1B [Suspect]
     Indication: MULTIPLE SCLEROSIS
     Dosage: , SUBCUTANEOUS
     Route: 058
  3. LYRICA (PREGABALIN( 05/20/2007 TO UNK [Concomitant]
  4. MODAFINIL [Concomitant]
  5. INTERFERON BETA-1A (INTERFERON BETA-1A) INJECTION [Concomitant]
  6. CLONAZEPAM (CLONAZEPAM) 10/24/2002 TO UNK [Concomitant]

REACTIONS (1)
  - MULTIPLE SCLEROSIS [None]
